FAERS Safety Report 7049766-5 (Version None)
Quarter: 2010Q4

REPORT INFORMATION
  Report Type: 
  Country: None (occurrence: None)
  Receive Date: 20101012
  Receipt Date: 20100928
  Transmission Date: 20110411
  Serious: Yes (Hospitalization)
  Sender: FDA-Public Use
  Company Number: 1000013555

PATIENT
  Age: 70 Year
  Sex: Male
  Weight: 69.1 kg

DRUGS (11)
  1. MILNACIPRAN (MILNACIPRAN HYDROCHLORIDE) [Suspect]
     Indication: FIBROMYALGIA
     Dosage: 150 MG, ORAL; DOWN-TAPER PER PROTOCOL, ORAL
     Route: 048
     Dates: start: 20100106, end: 20100330
  2. MILNACIPRAN (MILNACIPRAN HYDROCHLORIDE) [Suspect]
     Indication: FIBROMYALGIA
     Dosage: 150 MG, ORAL; DOWN-TAPER PER PROTOCOL, ORAL
     Route: 048
     Dates: start: 20100331, end: 20100407
  3. MILNACIPRAN (OPEN-LABEL) (MILNACIPRAN HYDROCHLORIDE) [Suspect]
     Indication: FIBROMYALGIA
     Dosage: 150 MG, ORAL
     Route: 048
     Dates: start: 20091210, end: 20100106
  4. MULTIVITAMIN (TABLETS) [Concomitant]
  5. CALCIUM WITH D [Concomitant]
  6. ASCORBIC ACID [Concomitant]
  7. ASPIRIN [Concomitant]
  8. FISH OIL (TABLETS) [Concomitant]
  9. ATENOLOL [Concomitant]
  10. IBUPROFEN [Concomitant]
  11. LUNESTA [Concomitant]

REACTIONS (21)
  - ATRIAL TACHYCARDIA [None]
  - BALANCE DISORDER [None]
  - BLOOD PRESSURE INCREASED [None]
  - BLOOD PRESSURE SYSTOLIC INCREASED [None]
  - BUNDLE BRANCH BLOCK RIGHT [None]
  - CARDIAC FAILURE CONGESTIVE [None]
  - DIZZINESS POSTURAL [None]
  - DYSPNOEA [None]
  - ELECTROCARDIOGRAM ST SEGMENT ELEVATION [None]
  - ELECTROCARDIOGRAM T WAVE PEAKED [None]
  - EXTRASYSTOLES [None]
  - LEFT VENTRICULAR HYPERTROPHY [None]
  - MITRAL VALVE INCOMPETENCE [None]
  - MITRAL VALVE SCLEROSIS [None]
  - OEDEMA PERIPHERAL [None]
  - PULMONARY HYPERTENSION [None]
  - SINUS BRADYCARDIA [None]
  - SUPRAVENTRICULAR EXTRASYSTOLES [None]
  - TRICUSPID VALVE INCOMPETENCE [None]
  - VENTRICULAR EXTRASYSTOLES [None]
  - VENTRICULAR TACHYCARDIA [None]
